FAERS Safety Report 9283585 (Version 1)
Quarter: 2013Q2

REPORT INFORMATION
  Report Type: Spontaneous
  Country: TW (occurrence: None)
  Receive Date: 20130506
  Receipt Date: 20130506
  Transmission Date: 20140414
  Serious: Yes (Hospitalization)
  Sender: FDA-Public Use
  Company Number: VAL_02307_2013

PATIENT
  Age: 14 Year
  Sex: Male

DRUGS (3)
  1. CARBAMAZEPINE [Suspect]
     Indication: CONVULSION
     Route: 048
  2. CLONAZEPAM (CLONAZEPAM) (CLONAZEPAM) [Suspect]
     Indication: CONVULSION
     Route: 048
  3. PHENYTOIN (PHENYTOIN) [Suspect]
     Indication: CONVULSION
     Dosage: DF INTRAVENOUS (NOT OTHERWISE SPECIFIED)
     Route: 042

REACTIONS (14)
  - Convulsion [None]
  - Loss of consciousness [None]
  - Pyrexia [None]
  - Leukopenia [None]
  - Thrombocytopenia [None]
  - Oxygen saturation decreased [None]
  - Atrioventricular block complete [None]
  - Left ventricular dysfunction [None]
  - Congestive cardiomyopathy [None]
  - Drug reaction with eosinophilia and systemic symptoms [None]
  - Cardiac failure [None]
  - Hepatitis [None]
  - Renal failure [None]
  - Myocarditis [None]
